FAERS Safety Report 14016458 (Version 1)
Quarter: 2017Q3

REPORT INFORMATION
  Report Type: Spontaneous
  Country: US (occurrence: US)
  Receive Date: 20170927
  Receipt Date: 20170927
  Transmission Date: 20171128
  Serious: No
  Sender: FDA-Public Use
  Company Number: US-SA-2017SA105381

PATIENT
  Age: 50 Year
  Sex: Female
  Weight: 59.87 kg

DRUGS (3)
  1. VALTREX [Concomitant]
     Active Substance: VALACYCLOVIR HYDROCHLORIDE
     Indication: PROPHYLAXIS
     Route: 065
     Dates: start: 20170424
  2. VITAMIN D3 [Concomitant]
     Active Substance: CHOLECALCIFEROL
     Indication: SUPPLEMENTATION THERAPY
     Dosage: DOSE:5000 UNIT(S)
     Route: 065
  3. LEMTRADA [Suspect]
     Active Substance: ALEMTUZUMAB
     Indication: MULTIPLE SCLEROSIS
     Route: 041
     Dates: start: 20170424, end: 20170428

REACTIONS (2)
  - Lymphocyte count abnormal [Not Recovered/Not Resolved]
  - CD4 lymphocytes abnormal [Not Recovered/Not Resolved]

NARRATIVE: CASE EVENT DATE: 20170605
